FAERS Safety Report 6544068-5 (Version None)
Quarter: 2010Q1

REPORT INFORMATION
  Report Type: 
  Country: None (occurrence: None)
  Receive Date: 20100119
  Receipt Date: 20100119
  Transmission Date: 20100710
  Serious: No
  Sender: FDA-Public Use
  Company Number: None

PATIENT
  Age: 66 Year
  Sex: Female
  Weight: 75.2971 kg

DRUGS (4)
  1. JANUMET [Suspect]
  2. JANUMET [Concomitant]
  3. SITAGLIPTIN [Concomitant]
  4. METFORMIN HCI [Concomitant]

REACTIONS (6)
  - ABDOMINAL PAIN [None]
  - CONSTIPATION [None]
  - INTESTINAL STENOSIS [None]
  - LIVER DISORDER [None]
  - MIGRAINE [None]
  - NAUSEA [None]
